FAERS Safety Report 11229869 (Version 2)
Quarter: 2015Q4

REPORT INFORMATION
  Report Type: Spontaneous
  Country: JP (occurrence: JP)
  Receive Date: 20150630
  Receipt Date: 20151013
  Transmission Date: 20160304
  Serious: No
  Sender: FDA-Public Use
  Company Number: JP-009507513-1506JPN014925

PATIENT
  Age: 66 Year
  Sex: Male
  Weight: 67 kg

DRUGS (10)
  1. CELECOX [Concomitant]
     Active Substance: CELECOXIB
  2. LANSOPRAZOLE. [Concomitant]
     Active Substance: LANSOPRAZOLE
  3. JANUVIA [Suspect]
     Active Substance: SITAGLIPTIN PHOSPHATE
     Indication: TYPE 2 DIABETES MELLITUS
     Dosage: 50 MG, UNK
     Route: 048
     Dates: start: 20150423, end: 20150508
  4. VICTOZA [Suspect]
     Active Substance: LIRAGLUTIDE
     Indication: TYPE 2 DIABETES MELLITUS
     Dosage: 0.3 MG, UNK
     Route: 058
     Dates: start: 20150509, end: 20150511
  5. GLACTIV [Suspect]
     Active Substance: SITAGLIPTIN
     Indication: TYPE 2 DIABETES MELLITUS
     Dosage: 50 MG, QD (12.5MG,25MG,50MG,100MG)
     Route: 048
     Dates: start: 201111, end: 20150422
  6. LANTUS [Concomitant]
     Active Substance: INSULIN GLARGINE
     Dosage: 12 IU, UNK
     Dates: start: 201102, end: 201105
  7. METHYCOBAL [Concomitant]
     Active Substance: METHYLCOBALAMIN
  8. LOXOPROFEN [Concomitant]
     Active Substance: LOXOPROFEN
  9. VICTOZA [Suspect]
     Active Substance: LIRAGLUTIDE
     Dosage: 0.6 MG, UNK
     Route: 058
     Dates: start: 20150512
  10. LANTUS [Concomitant]
     Active Substance: INSULIN GLARGINE
     Dosage: 18 IU
     Dates: start: 201105

REACTIONS (1)
  - Seronegative arthritis [Recovered/Resolved]

NARRATIVE: CASE EVENT DATE: 20150414
